FAERS Safety Report 6495150-2 (Version None)
Quarter: 2009Q4

REPORT INFORMATION
  Report Type: 
  Country: None (occurrence: None)
  Receive Date: 20091214
  Receipt Date: 20090507
  Transmission Date: 20100525
  Serious: No
  Sender: FDA-Public Use
  Company Number: US-BRISTOL-MYERS SQUIBB COMPANY-14614838

PATIENT
  Age: 47 Year
  Sex: Female
  Weight: 77 kg

DRUGS (13)
  1. ABILIFY [Suspect]
     Indication: DEPRESSION
     Dosage: DOSE INCREASED TO 5 MG
     Dates: start: 20090101
  2. ABILIFY [Suspect]
     Indication: BIPOLAR DISORDER
     Dosage: DOSE INCREASED TO 5 MG
     Dates: start: 20090101
  3. AMBIEN [Concomitant]
  4. XYZAL [Concomitant]
  5. LASIX [Concomitant]
  6. KLONOPIN [Concomitant]
  7. LITHIUM [Concomitant]
  8. URSO 250 [Concomitant]
  9. FORTEO [Concomitant]
  10. VITAMIN D [Concomitant]
  11. VITAMIN E [Concomitant]
  12. IRON [Concomitant]
  13. ASCORBIC ACID [Concomitant]

REACTIONS (2)
  - MYALGIA [None]
  - RESTLESS LEGS SYNDROME [None]
